FAERS Safety Report 5822877-5 (Version None)
Quarter: 2008Q3

REPORT INFORMATION
  Report Type: 
  Country: None (occurrence: None)
  Receive Date: 20080724
  Receipt Date: 20080724
  Transmission Date: 20090109
  Serious: Yes (Hospitalization)
  Sender: FDA-Public Use
  Company Number: None

PATIENT
  Age: 56 Year
  Sex: Female
  Weight: 80 kg

DRUGS (6)
  1. VANCOMYCIN [Suspect]
     Indication: OSTEOMYELITIS
     Dosage: 1750MG Q24HR IV
     Route: 042
     Dates: start: 20080709, end: 20080716
  2. VANCOMYCIN [Suspect]
     Indication: TYPE 2 DIABETES MELLITUS
     Dosage: 1750MG Q24HR IV
     Route: 042
     Dates: start: 20080709, end: 20080716
  3. VICODIN [Concomitant]
  4. GLYBURIDE [Concomitant]
  5. PIOGLITAZONE [Concomitant]
  6. ZOLPIDEM [Concomitant]

REACTIONS (1)
  - RENAL FAILURE ACUTE [None]
